FAERS Safety Report 7078163-1 (Version None)
Quarter: 2010Q4

REPORT INFORMATION
  Report Type: 
  Country: None (occurrence: None)
  Receive Date: 20101101
  Receipt Date: 20101101
  Transmission Date: 20110411
  Serious: Yes (Other)
  Sender: FDA-Public Use
  Company Number: None

PATIENT
  Age: 69 Year
  Sex: Male
  Weight: 99.7913 kg

DRUGS (1)
  1. DICLOFENAC SODIUM [Suspect]
     Indication: SHOULDER ARTHROPLASTY
     Dosage: 75MG 2- DAY
     Dates: start: 20100913, end: 20100917

REACTIONS (2)
  - SKIN EXFOLIATION [None]
  - URTICARIA [None]
